FAERS Safety Report 4305080-X (Version None)
Quarter: 2004Q1

REPORT INFORMATION
  Report Type: 
  Country: None (occurrence: None)
  Receive Date: 20040225
  Receipt Date: 20040225
  Transmission Date: 20041129
  Serious: Yes (Hospitalization)
  Sender: FDA-Public Use
  Company Number: None

PATIENT
  Age: 83 Year
  Sex: Male

DRUGS (4)
  1. ENOXAPARIN SODIUM [Suspect]
     Indication: AORTIC ANEURYSM REPAIR
     Dosage: 75 MG SC BID
     Route: 058
  2. ENOXAPARIN SODIUM [Suspect]
     Indication: ATRIAL FIBRILLATION
     Dosage: 75 MG SC BID
     Route: 058
  3. SOTOLOL [Concomitant]
  4. METOPROLOL TARTRATE [Concomitant]

REACTIONS (3)
  - HAEMATURIA [None]
  - INTERNATIONAL NORMALISED RATIO INCREASED [None]
  - RETROPERITONEAL HAEMATOMA [None]
